FAERS Safety Report 8071198-1 (Version None)
Quarter: 2012Q1

REPORT INFORMATION
  Report Type: 
  Country: None (occurrence: None)
  Receive Date: 20120125
  Receipt Date: 20120120
  Transmission Date: 20120608
  Serious: Yes (Death, Life-Threatening, Hospitalization, Disabling, Other)
  Sender: FDA-Public Use
  Company Number: PHHY2011MX097734

PATIENT
  Sex: Male

DRUGS (1)
  1. ONBREZ [Suspect]
     Indication: CHRONIC OBSTRUCTIVE PULMONARY DISEASE
     Dosage: 1 DF, QD

REACTIONS (7)
  - CARDIAC FAILURE [None]
  - EMPHYSEMA [None]
  - RENAL IMPAIRMENT [None]
  - INFLUENZA [None]
  - GAIT DISTURBANCE [None]
  - ASPHYXIA [None]
  - CHEST PAIN [None]
